FAERS Safety Report 22113107 (Version 5)
Quarter: 2023Q2

REPORT INFORMATION
  Report Type: Spontaneous
  Country: JP (occurrence: JP)
  Receive Date: 20230320
  Receipt Date: 20230421
  Transmission Date: 20230722
  Serious: Yes (Hospitalization, Disabling)
  Sender: FDA-Public Use
  Company Number: JP-AMGEN-JPNSP2023042113

PATIENT
  Age: 13 Year
  Sex: Male
  Weight: 47 kg

DRUGS (5)
  1. BLINCYTO [Suspect]
     Active Substance: BLINATUMOMAB
     Indication: B precursor type acute leukaemia
     Dosage: 15 MICROGRAM, 24-HOUR CONTINUOUS INFUSION
     Route: 042
     Dates: start: 20230111, end: 2023
  2. BLINCYTO [Suspect]
     Active Substance: BLINATUMOMAB
     Dosage: 28 MICROGRAM, 24-HOUR CONTINUOUS INFUSION
     Route: 042
     Dates: start: 20230222, end: 20230307
  3. BLINCYTO [Suspect]
     Active Substance: BLINATUMOMAB
     Dosage: UNK, 24-HOUR CONTINUOUS INFUSION
     Route: 042
     Dates: start: 202303, end: 20230308
  4. SULFAMETHOXAZOLE\TRIMETHOPRIM [Concomitant]
     Active Substance: SULFAMETHOXAZOLE\TRIMETHOPRIM
     Dosage: UNK
  5. OLOPATADINE [Concomitant]
     Active Substance: OLOPATADINE
     Dosage: UNK

REACTIONS (10)
  - Status epilepticus [Recovered/Resolved with Sequelae]
  - Cytokine release syndrome [Recovered/Resolved with Sequelae]
  - Hemiplegia [Recovering/Resolving]
  - Loss of consciousness [Recovered/Resolved]
  - Encephalitis [Recovering/Resolving]
  - Seizure [Recovered/Resolved]
  - Memory impairment [Recovering/Resolving]
  - Nausea [Recovered/Resolved]
  - Pyrexia [Recovered/Resolved]
  - Headache [Recovered/Resolved]

NARRATIVE: CASE EVENT DATE: 20230301
